FAERS Safety Report 5082443-9 (Version None)
Quarter: 2006Q3

REPORT INFORMATION
  Report Type: 
  Country: None (occurrence: None)
  Receive Date: 20060817
  Receipt Date: 20060807
  Transmission Date: 20061208
  Serious: Yes (Death, Hospitalization, Other)
  Sender: FDA-Public Use
  Company Number: FR-BRISTOL-MYERS SQUIBB COMPANY-13471586

PATIENT
  Age: 56 Year
  Sex: Male

DRUGS (2)
  1. METFORMIN HYDROCHLORIDE [Suspect]
     Indication: DIABETES MELLITUS NON-INSULIN-DEPENDENT
     Dosage: INITIAL DOSE : 850MG TWICE DAILY, INCREASED TO 2550 DAILY IN MARCH-2006
     Route: 048
     Dates: start: 20060201
  2. DIAMICRON [Concomitant]
     Indication: DIABETES MELLITUS NON-INSULIN-DEPENDENT
     Route: 048
     Dates: start: 20060401

REACTIONS (4)
  - CONSTIPATION [None]
  - GASTROINTESTINAL HAEMORRHAGE [None]
  - HEPATIC NEOPLASM MALIGNANT [None]
  - LIVER DISORDER [None]
